FAERS Safety Report 8299662-0 (Version None)
Quarter: 2012Q2

REPORT INFORMATION
  Report Type: 
  Country: None (occurrence: None)
  Receive Date: 20120419
  Receipt Date: 20120412
  Transmission Date: 20120825
  Serious: Yes (Hospitalization, Other)
  Sender: FDA-Public Use
  Company Number: US-ELI_LILLY_AND_COMPANY-US201109006340

PATIENT
  Sex: Female

DRUGS (11)
  1. FORTEO [Suspect]
     Dosage: 20 UG, QD
  2. FLEXERIL [Concomitant]
     Indication: MUSCLE SPASMS
     Dosage: 2.5 MG, UNK
  3. QUININE SULFATE [Concomitant]
     Indication: MUSCLE SPASMS
     Dosage: 125 MG, EACH EVENING
  4. FORTEO [Suspect]
     Indication: OSTEOPOROSIS
     Dosage: 20 UG, QD
     Dates: start: 20030301, end: 20050101
  5. FENTANYL [Concomitant]
     Dosage: 25 UG, UNK
  6. VERAPAMIL [Concomitant]
     Indication: HYPERTENSION
     Dosage: 60 MG, UNK
  7. ESTRADIOL [Concomitant]
     Indication: HORMONE REPLACEMENT THERAPY
     Dosage: UNK
  8. HYDROCHLOROTHIAZIDE [Concomitant]
  9. FORTEO [Suspect]
     Dosage: 20 UG, QD
     Dates: end: 20120401
  10. AMBIEN [Concomitant]
     Dosage: 5 MG, EACH EVENING
  11. SYNTHROID [Concomitant]
     Dosage: 0.88 UG, UNK

REACTIONS (17)
  - PELVIC FRACTURE [None]
  - MUSCLE SPASMS [None]
  - HIP FRACTURE [None]
  - LIMB CRUSHING INJURY [None]
  - BONE DENSITY DECREASED [None]
  - BODY HEIGHT DECREASED [None]
  - INCORRECT STORAGE OF DRUG [None]
  - FALL [None]
  - HAND FRACTURE [None]
  - SPINAL OSTEOARTHRITIS [None]
  - ARTHRALGIA [None]
  - MOBILITY DECREASED [None]
  - NERVE COMPRESSION [None]
  - KNEE ARTHROPLASTY [None]
  - OSTEOARTHRITIS [None]
  - PAIN [None]
  - DRUG DOSE OMISSION [None]
